FAERS Safety Report 15996913 (Version 1)
Quarter: 2019Q1

REPORT INFORMATION
  Report Type: Spontaneous
  Country: NL (occurrence: NL)
  Receive Date: 20190222
  Receipt Date: 20190222
  Transmission Date: 20190418
  Serious: Yes (Death, Hospitalization)
  Sender: FDA-Public Use
  Company Number: NL-BAUSCH-BL-2019-005270

PATIENT
  Sex: Male

DRUGS (3)
  1. DEXAMETHASONE. [Suspect]
     Active Substance: DEXAMETHASONE
     Indication: NEOPLASM PROGRESSION
     Route: 065
     Dates: start: 2016
  2. TEMSIROLIMUS. [Concomitant]
     Active Substance: TEMSIROLIMUS
     Indication: NEOPLASM PROGRESSION
     Route: 065
     Dates: start: 2016
  3. EVEROLIMUS. [Suspect]
     Active Substance: EVEROLIMUS
     Indication: NEOPLASM PROGRESSION
     Route: 065
     Dates: start: 2016

REACTIONS (11)
  - Vomiting [Fatal]
  - Abdominal pain [Fatal]
  - Rales [Fatal]
  - General physical health deterioration [Fatal]
  - Gastrointestinal hypomotility [Fatal]
  - Dyspnoea [Fatal]
  - Abdominal distension [Fatal]
  - Product use in unapproved indication [Unknown]
  - Intestinal ischaemia [Fatal]
  - Aspiration [Fatal]
  - Ileus [Fatal]

NARRATIVE: CASE EVENT DATE: 20161115
